FAERS Safety Report 6774276-X (Version None)
Quarter: 2010Q2

REPORT INFORMATION
  Report Type: 
  Country: None (occurrence: None)
  Receive Date: 20100617
  Receipt Date: 20100608
  Transmission Date: 20101027
  Serious: Yes (Other)
  Sender: FDA-Public Use
  Company Number: FR-ASTRAZENECA-2010SE26425

PATIENT
  Age: 70 Year
  Sex: Female

DRUGS (2)
  1. CRESTOR [Suspect]
     Indication: DYSLIPIDAEMIA
     Route: 048
     Dates: start: 20100501, end: 20100501
  2. UNSPECIFIED FIBRATES [Concomitant]
     Indication: DYSLIPIDAEMIA
     Dates: end: 20100501

REACTIONS (1)
  - BILIARY COLIC [None]
